FAERS Safety Report 19977632 (Version 7)
Quarter: 2022Q4

REPORT INFORMATION
  Report Type: Report from Study
  Country: CA (occurrence: CA)
  Receive Date: 20211020
  Receipt Date: 20221012
  Transmission Date: 20230112
  Serious: Yes (Other)
  Sender: FDA-Public Use
  Company Number: CA-TAKEDA-2021TUS061356

PATIENT
  Age: 61 Year
  Sex: Female

DRUGS (30)
  1. VEDOLIZUMAB [Suspect]
     Active Substance: VEDOLIZUMAB
     Indication: Crohn^s disease
     Dosage: 300 MILLIGRAM
     Route: 042
     Dates: start: 20210909
  2. VEDOLIZUMAB [Suspect]
     Active Substance: VEDOLIZUMAB
     Indication: Crohn^s disease
     Dosage: 108 MILLIGRAM, Q2WEEKS
     Route: 058
     Dates: start: 20220407
  3. VEDOLIZUMAB [Suspect]
     Active Substance: VEDOLIZUMAB
     Dosage: 108 MILLIGRAM, Q2WEEKS
     Route: 058
  4. BISOPROLOL [Concomitant]
     Active Substance: BISOPROLOL
     Dosage: 5 MILLIGRAM, QD
  5. CLONAZEPAM [Concomitant]
     Active Substance: CLONAZEPAM
     Dosage: 1 MILLIGRAM
  6. LAMOTRIGINE [Concomitant]
     Active Substance: LAMOTRIGINE
     Dosage: 50 MILLIGRAM, QD
  7. NORTRIPTYLINE [Concomitant]
     Active Substance: NORTRIPTYLINE
     Dosage: 25 MILLIGRAM, QD
  8. PANTOPRAZOLE [Concomitant]
     Active Substance: PANTOPRAZOLE
     Dosage: 40 MILLIGRAM, BID
  9. SERTRALINE [Concomitant]
     Active Substance: SERTRALINE HYDROCHLORIDE
     Dosage: 100 MILLIGRAM, QD
  10. TRAZODONE [Concomitant]
     Active Substance: TRAZODONE HYDROCHLORIDE
     Dosage: 150 MILLIGRAM, QD
  11. NITROGLYCERIN [Concomitant]
     Active Substance: NITROGLYCERIN
     Dosage: UNK
  12. ALBUTEROL [Concomitant]
     Active Substance: ALBUTEROL
     Dosage: UNK
  13. ENTOCORT [Concomitant]
     Active Substance: BUDESONIDE
     Dosage: 9 MILLIGRAM, QD
  14. PENTASA [Concomitant]
     Active Substance: MESALAMINE
     Dosage: UNK
  15. CONCERTA [Concomitant]
     Active Substance: METHYLPHENIDATE HYDROCHLORIDE
     Dosage: 27 MILLIGRAM, QD
  16. LYRICA [Concomitant]
     Active Substance: PREGABALIN
     Dosage: 25 MILLIGRAM, BID
  17. PERCOCET [Concomitant]
     Active Substance: ACETAMINOPHEN\OXYCODONE HYDROCHLORIDE
     Dosage: UNK
  18. SENOKOT [Concomitant]
     Active Substance: SENNOSIDES
     Dosage: UNK
  19. IMODIUM [Concomitant]
     Active Substance: LOPERAMIDE HYDROCHLORIDE
     Dosage: 2 MILLIGRAM
  20. TYLENOL [Concomitant]
     Active Substance: ACETAMINOPHEN
     Dosage: 500 MILLIGRAM
  21. LACTULOSE [Concomitant]
     Active Substance: LACTULOSE
     Dosage: UNK
  22. MELATONIN [Concomitant]
     Active Substance: MELATONIN
     Dosage: UNK
  23. LIPITOR [Concomitant]
     Active Substance: ATORVASTATIN CALCIUM
     Dosage: 10 MILLIGRAM, QD
  24. DEXILANT [Concomitant]
     Active Substance: DEXLANSOPRAZOLE
     Dosage: 60 MILLIGRAM
  25. VITAMIN D3 [Concomitant]
     Active Substance: CHOLECALCIFEROL
     Dosage: UNK
  26. MORPHINE SULFATE [Concomitant]
     Active Substance: MORPHINE SULFATE
     Dosage: 5 MILLIGRAM
  27. LOPERAMIDE [Concomitant]
     Active Substance: LOPERAMIDE
     Dosage: UNK
  28. ATORVASTATIN [Concomitant]
     Active Substance: ATORVASTATIN
     Dosage: 10 MILLIGRAM
  29. AVENTYL [Concomitant]
     Active Substance: NORTRIPTYLINE HYDROCHLORIDE
     Dosage: 5 MILLIGRAM
  30. SENNOSIDES [Concomitant]
     Active Substance: SENNOSIDES
     Dosage: UNK

REACTIONS (20)
  - Crohn^s disease [Unknown]
  - Major depression [Unknown]
  - Subclavian artery stenosis [Unknown]
  - Abdominal tenderness [Unknown]
  - Diarrhoea [Unknown]
  - Sensitive skin [Unknown]
  - Influenza like illness [Unknown]
  - Gastrointestinal disorder [Unknown]
  - Feeling hot [Unknown]
  - Stress [Unknown]
  - Post-traumatic stress disorder [Unknown]
  - Grief reaction [Unknown]
  - Blood pressure difference of extremities [Unknown]
  - Rhinorrhoea [Unknown]
  - Abdominal pain [Unknown]
  - Decreased appetite [Unknown]
  - Constipation [Unknown]
  - Nasopharyngitis [Unknown]
  - Product dose omission issue [Unknown]
  - Product administration error [Unknown]
